FAERS Safety Report 25649619 (Version 1)
Quarter: 2025Q3

REPORT INFORMATION
  Report Type: Spontaneous
  Country: US (occurrence: None)
  Receive Date: 20250805
  Receipt Date: 20250805
  Transmission Date: 20251021
  Serious: Yes (unspecified)
  Sender: FDA-CTU
  Company Number: None

PATIENT
  Age: 72 Year
  Sex: Female
  Weight: 55.1 kg

DRUGS (2)
  1. INFED [Suspect]
     Active Substance: IRON DEXTRAN
     Indication: Iron deficiency
     Route: 042
     Dates: start: 20250731, end: 20250731
  2. SODIUM CHLORIDE [Concomitant]
     Active Substance: SODIUM CHLORIDE
     Dates: start: 20250731, end: 20250731

REACTIONS (10)
  - Flushing [None]
  - Dyspnoea [None]
  - Wheezing [None]
  - Chest discomfort [None]
  - Cough [None]
  - Tachycardia [None]
  - Anxiety [None]
  - Dizziness [None]
  - Feeling hot [None]
  - Infusion related reaction [None]

NARRATIVE: CASE EVENT DATE: 20250731
